FAERS Safety Report 18326238 (Version 1)
Quarter: 2020Q3

REPORT INFORMATION
  Report Type: Spontaneous
  Country: US (occurrence: US)
  Receive Date: 20200929
  Receipt Date: 20200929
  Transmission Date: 20201103
  Serious: Yes (Other)
  Sender: FDA-Public Use
  Company Number: US-TEVA-2020-US-1831860

PATIENT
  Age: 81 Year
  Sex: Male

DRUGS (2)
  1. RAMIPRIL. [Concomitant]
     Active Substance: RAMIPRIL
     Dosage: 5MG QAM
  2. NUVIGIL [Suspect]
     Active Substance: ARMODAFINIL
     Indication: NARCOLEPSY
     Dosage: CURRENTLY TAKING150 MG Q AM, WHICH HE IS WEANING OFF TO 100MG
     Route: 065

REACTIONS (4)
  - Malignant neoplasm of thymus [Recovered/Resolved]
  - Lethargy [Unknown]
  - Blood testosterone increased [Not Recovered/Not Resolved]
  - Weight decreased [Unknown]

NARRATIVE: CASE EVENT DATE: 2015
